FAERS Safety Report 7809761-2 (Version None)
Quarter: 2011Q4

REPORT INFORMATION
  Report Type: 
  Country: None (occurrence: None)
  Receive Date: 20111012
  Receipt Date: 20110930
  Transmission Date: 20120403
  Serious: Yes (Other)
  Sender: FDA-Public Use
  Company Number: PHHY2011BR87223

PATIENT
  Sex: Female

DRUGS (4)
  1. PHENOBARBITAL TAB [Concomitant]
     Dosage: 100 MG, UNK
  2. TEGRETOL [Suspect]
     Dosage: 400 MG
  3. RISPERIDONE [Concomitant]
     Dosage: 2 MG, UNK
  4. TEGRETOL [Suspect]
     Dosage: 200 MG

REACTIONS (3)
  - CONVULSION [None]
  - HEADACHE [None]
  - NERVOUSNESS [None]
